FAERS Safety Report 16996849 (Version 3)
Quarter: 2019Q4

REPORT INFORMATION
  Report Type: Spontaneous
  Country: US (occurrence: US)
  Receive Date: 20191105
  Receipt Date: 20191210
  Transmission Date: 20200122
  Serious: No
  Sender: FDA-Public Use
  Company Number: US-ACTELION-A-US2019-197717

PATIENT
  Age: 60 Year
  Sex: Female
  Weight: 77.1 kg

DRUGS (1)
  1. OPSUMIT [Suspect]
     Active Substance: MACITENTAN
     Indication: PULMONARY ARTERIAL HYPERTENSION
     Dosage: 10 MG, QD
     Route: 048

REACTIONS (7)
  - Cough [Not Recovered/Not Resolved]
  - Nasal congestion [Unknown]
  - Unevaluable event [Unknown]
  - Bronchitis [Not Recovered/Not Resolved]
  - Nasopharyngitis [Unknown]
  - Gait disturbance [Unknown]
  - Peripheral swelling [Unknown]

NARRATIVE: CASE EVENT DATE: 201911
